FAERS Safety Report 10264690 (Version 2)
Quarter: 2014Q2

REPORT INFORMATION
  Report Type: Report from Study
  Country: US (occurrence: US)
  Receive Date: 20140627
  Receipt Date: 20140627
  Transmission Date: 20141212
  Serious: Yes (Hospitalization)
  Sender: FDA-Public Use
  Company Number: US-JNJFOC-20140515347

PATIENT
  Age: 45 Year
  Sex: Male

DRUGS (10)
  1. REMICADE [Suspect]
     Indication: RHEUMATOID ARTHRITIS
     Route: 042
     Dates: start: 20130909
  2. REMICADE [Suspect]
     Indication: RHEUMATOID ARTHRITIS
     Route: 042
     Dates: start: 20140515, end: 20140515
  3. ALLOPURINOL [Concomitant]
     Indication: PROPHYLAXIS
     Route: 048
  4. LISINOPRIL [Concomitant]
     Indication: HYPERTENSION
     Route: 048
  5. METFORMIN [Concomitant]
     Indication: DIABETES MELLITUS
     Route: 048
  6. PRAVASTATIN [Concomitant]
     Indication: BLOOD CHOLESTEROL
     Route: 048
  7. FOLIC ACID [Concomitant]
     Route: 048
  8. METHOTREXATE [Concomitant]
     Indication: RHEUMATOID ARTHRITIS
     Route: 030
  9. VICODIN [Concomitant]
     Indication: PAIN
     Dosage: 5-325 MG AS NEEDED
     Route: 048
  10. VITAMIN D [Concomitant]
     Route: 048
     Dates: start: 201404

REACTIONS (5)
  - Road traffic accident [Recovered/Resolved]
  - Cardiac disorder [Recovered/Resolved]
  - Anaphylactic shock [Recovered/Resolved]
  - Infusion related reaction [Recovered/Resolved]
  - Musculoskeletal discomfort [Recovered/Resolved]
